FAERS Safety Report 4607511-4 (Version None)
Quarter: 2005Q1

REPORT INFORMATION
  Report Type: 
  Country: None (occurrence: None)
  Receive Date: 20050309
  Receipt Date: 20050221
  Transmission Date: 20050727
  Serious: No
  Sender: FDA-Public Use
  Company Number: 10355

PATIENT
  Age: 60 Year
  Sex: Female

DRUGS (6)
  1. METHOTREXATE [Suspect]
     Indication: RHEUMATOID ARTHRITIS
     Dosage: PO
     Route: 048
     Dates: start: 19960101, end: 20050101
  2. ROSUVASTATIN [Suspect]
     Indication: BLOOD CHOLESTEROL INCREASED
     Dosage: PO
     Route: 048
     Dates: start: 20041201, end: 20050101
  3. SERTRALINE HCL [Concomitant]
  4. TRIMIPRAMINE MALEATE [Concomitant]
  5. RISEDRONIC ACID [Concomitant]
  6. PIROXICAM [Concomitant]

REACTIONS (2)
  - DRUG INTERACTION [None]
  - LIVER FUNCTION TEST ABNORMAL [None]
